FAERS Safety Report 10305716 (Version 1)
Quarter: 2014Q3

REPORT INFORMATION
  Report Type: Spontaneous
  Country: US (occurrence: US)
  Receive Date: 20140715
  Receipt Date: 20140715
  Transmission Date: 20150326
  Serious: No
  Sender: FDA-Public Use
  Company Number: US-GLAXOSMITHKLINE-A1066652A

PATIENT
  Age: 72 Year
  Sex: Female

DRUGS (1)
  1. NICORETTE [Suspect]
     Active Substance: NICOTINE
     Indication: EX-TOBACCO USER

REACTIONS (3)
  - Abdominal discomfort [Recovered/Resolved]
  - Hiccups [Recovered/Resolved]
  - Eructation [Recovered/Resolved]
